FAERS Safety Report 14967150 (Version 1)
Quarter: 2018Q2

REPORT INFORMATION
  Report Type: Report from Study
  Country: DE (occurrence: DE)
  Receive Date: 20180604
  Receipt Date: 20180604
  Transmission Date: 20180711
  Serious: Yes (Death, Other)
  Sender: FDA-Public Use
  Company Number: DE-CHEPLA-C20170833_A

PATIENT

DRUGS (11)
  1. TRETINOIN. [Suspect]
     Active Substance: TRETINOIN
     Dosage: INDUCTION: 45MG/MM2/D, 2 DAILY DOSES,  UNTIL COMPL. HEMATOLOGIC REMISSION, OR MAX. 90 DAYS
     Route: 048
  2. IDARUBICIN [Suspect]
     Active Substance: IDARUBICIN
     Dosage: 12MG/MM2/D GIVEN AS AN INTRAVENOUS BOLUS DOSE ON DAYS 2,4,6 AND 8 (OLDER THAN 70: NO DOSE ON D8)
     Route: 040
  3. MERCAPTOPURINE. [Suspect]
     Active Substance: MERCAPTOPURINE
     Dosage: DISCONTINUED IF WBC WAS LESS THAN 2.5 X 10^9/L
  4. METHOTREXATE. [Suspect]
     Active Substance: METHOTREXATE
     Dosage: INTRAMUSCULAR METHOTREXATE (15 MG/MM2/WK), 15 D/3 MO, 2 Y
     Route: 030
  5. IDARUBICIN [Suspect]
     Active Substance: IDARUBICIN
     Dosage: CONSOLIDATION: 2 CONSECUTIVE DAYS INSTEAD OF ONE IN THE THIRD COURSE
  6. TRETINOIN. [Suspect]
     Active Substance: TRETINOIN
     Dosage: CONSOLIDATION: 45 MG/M2/D WAS GIVEN ON DAYS 1 THROUGH 15
  7. IDARUBICIN [Suspect]
     Active Substance: IDARUBICIN
     Dosage: CONSOLIDATION: 3 SINGLE-AGENT CHEMOTHERAPY COURSES; IN THE FIRST COURSE TO 7 MG/MM2/D
  8. MERCAPTOPURINE. [Suspect]
     Active Substance: MERCAPTOPURINE
     Dosage: WBC COUNT WAS LESS THAN 3.5 X 10^9/L
     Route: 048
  9. TRETINOIN. [Suspect]
     Active Substance: TRETINOIN
     Dosage: IND.: FOR PATIENTS 20 YEARS OR YOUNGER, ATRA DOSE ADJUSTED TO 25 MG/MM2/D
     Route: 048
  10. MERCAPTOPURINE. [Suspect]
     Active Substance: MERCAPTOPURINE
     Dosage: PATIENTS NEG. FOR PML/RARA WERE STARTED ON ORAL MERCAPTOPURINE (50 MG/MM2/D) 15 D/3 MO, 2 Y
     Route: 048
  11. TRETINOIN. [Suspect]
     Active Substance: TRETINOIN
     Dosage: ORAL ATRA (45 MG/MM2/D) FOR 15 DAYS EVERY 3 MONTHS. 2 YEARS
     Route: 048

REACTIONS (13)
  - Hepatic cirrhosis [Fatal]
  - Infection [Unknown]
  - Acute myeloid leukaemia [Unknown]
  - Cytopenia [Recovered/Resolved]
  - Mucosal inflammation [Unknown]
  - Infection [Fatal]
  - Leukaemia recurrent [Recovered/Resolved]
  - Hepatotoxicity [Unknown]
  - Multiple organ dysfunction syndrome [Fatal]
  - Acute promyelocytic leukaemia differentiation syndrome [Unknown]
  - Chondrosarcoma [Unknown]
  - Cardiotoxicity [Unknown]
  - Haemorrhage [Fatal]
